FAERS Safety Report 21038262 (Version 2)
Quarter: 2022Q3

REPORT INFORMATION
  Report Type: Spontaneous
  Country: US (occurrence: US)
  Receive Date: 20220704
  Receipt Date: 20220716
  Transmission Date: 20221026
  Serious: No
  Sender: FDA-Public Use
  Company Number: US-MLMSERVICE-20220607-3596840-1

PATIENT
  Age: 55 Year
  Sex: Male

DRUGS (4)
  1. OXYCODONE [Suspect]
     Active Substance: OXYCODONE
     Indication: Breakthrough pain
     Dosage: 20 MG, QD
     Route: 065
  2. TAPENTADOL [Suspect]
     Active Substance: TAPENTADOL
     Indication: Breakthrough pain
     Dosage: UNK (EXTENDED RELEASE)
     Route: 065
  3. TAPENTADOL [Suspect]
     Active Substance: TAPENTADOL
     Dosage: UNK UNK, QD ( DAILY TAPENTADOL WAS REDUCED BY 50%)
     Route: 065
  4. GABAPENTIN [Concomitant]
     Active Substance: GABAPENTIN
     Indication: Pain
     Dosage: UNK
     Route: 065

REACTIONS (1)
  - Constipation [Recovering/Resolving]
